FAERS Safety Report 10386277 (Version 3)
Quarter: 2014Q4

REPORT INFORMATION
  Report Type: Spontaneous
  Country: US (occurrence: US)
  Receive Date: 20140815
  Receipt Date: 20141016
  Transmission Date: 20150528
  Serious: Yes (Hospitalization, Other)
  Sender: FDA-Public Use
  Company Number: US-009507513-1408USA006713

PATIENT
  Age: 48 Year
  Sex: Male
  Weight: 92.63 kg

DRUGS (1)
  1. TEMODAR [Suspect]
     Active Substance: TEMOZOLOMIDE
     Indication: GLIOBLASTOMA MULTIFORME
     Dosage: 400MG DAYS 1 THROUGH 5, EVERY 28 DAYS
     Route: 048
     Dates: start: 201003, end: 201408

REACTIONS (6)
  - Pneumonia [Recovering/Resolving]
  - Cerebral infarction [Unknown]
  - Cerebrovascular accident [Recovering/Resolving]
  - Hypoaesthesia [Unknown]
  - Anaplastic astrocytoma [Unknown]
  - Fatigue [Recovered/Resolved]

NARRATIVE: CASE EVENT DATE: 201408
